FAERS Safety Report 25570952 (Version 1)
Quarter: 2025Q3

REPORT INFORMATION
  Report Type: Spontaneous
  Country: CN (occurrence: CN)
  Receive Date: 20250717
  Receipt Date: 20250717
  Transmission Date: 20251021
  Serious: Yes (Hospitalization)
  Sender: ALEXION PHARMACEUTICALS
  Company Number: CN-ASTRAZENECA-202507CHN010812CN

PATIENT
  Age: 65 Year
  Sex: Male
  Weight: 95.8 kg

DRUGS (3)
  1. BRILINTA [Suspect]
     Active Substance: TICAGRELOR
     Indication: Rectal cancer
     Dosage: 200 MILLIGRAM, QD
     Dates: start: 20250624, end: 20250624
  2. CAPECITABINE [Suspect]
     Active Substance: CAPECITABINE
     Indication: Rectal cancer
     Dosage: 1.5 GRAM, BID
     Dates: start: 20250624, end: 20250707
  3. DEXTROSE [Concomitant]
     Active Substance: DEXTROSE MONOHYDRATE
     Indication: Rectal cancer
     Dosage: 500 MILLILITER, QD
     Dates: start: 20250624, end: 20250624

REACTIONS (1)
  - Myelosuppression [Recovering/Resolving]

NARRATIVE: CASE EVENT DATE: 20250708
